FAERS Safety Report 6788608-X (Version None)
Quarter: 2010Q2

REPORT INFORMATION
  Report Type: 
  Country: None (occurrence: None)
  Receive Date: 20100623
  Receipt Date: 20080412
  Transmission Date: 20101027
  Serious: Yes (Other)
  Sender: FDA-Public Use
  Company Number: US-PFIZER INC-2008023832

PATIENT
  Sex: Male

DRUGS (3)
  1. GEODON [Suspect]
     Dates: start: 20060301, end: 20071101
  2. ZYPREXA [Suspect]
     Dosage: DAILY
  3. PROPRANOLOL [Suspect]
     Indication: ANXIETY
     Dates: start: 20060319

REACTIONS (2)
  - CONVULSION [None]
  - DYSKINESIA [None]
